FAERS Safety Report 10161821 (Version 2)
Quarter: 2014Q2

REPORT INFORMATION
  Report Type: Report from Study
  Country: KR (occurrence: KR)
  Receive Date: 20140509
  Receipt Date: 20140509
  Transmission Date: 20141212
  Serious: Yes (Hospitalization)
  Sender: FDA-Public Use
  Company Number: KR-OTSUKA-JP-2013-12601

PATIENT
  Age: 36 Year
  Sex: Male
  Weight: 69 kg

DRUGS (1)
  1. OPC-13013 [Suspect]
     Indication: THROMBOANGIITIS OBLITERANS
     Dosage: 200 MG MILLIGRAM(S), DAILY DOSE
     Dates: start: 20130520

REACTIONS (3)
  - Wound [Recovered/Resolved]
  - Thromboangiitis obliterans [Recovered/Resolved]
  - Intermittent claudication [Unknown]
